FAERS Safety Report 18226357 (Version 1)
Quarter: 2020Q3

REPORT INFORMATION
  Report Type: Spontaneous
  Country: US (occurrence: US)
  Receive Date: 20200902
  Receipt Date: 20200902
  Transmission Date: 20201103
  Serious: Yes (Hospitalization)
  Sender: FDA-Public Use
  Company Number: None

PATIENT
  Sex: Female

DRUGS (22)
  1. CIPROFLOXACIN. [Concomitant]
     Active Substance: CIPROFLOXACIN
  2. SENNA PLUS [Concomitant]
     Active Substance: DOCUSATE SODIUM\SENNOSIDES\SENNOSIDES A AND B
  3. IBUPROFEN. [Concomitant]
     Active Substance: IBUPROFEN
  4. M?ACID GAS CHW [Concomitant]
  5. OXYBUTYNIN. [Concomitant]
     Active Substance: OXYBUTYNIN CHLORIDE
  6. CEFPODOXIME [Concomitant]
     Active Substance: CEFPODOXIME
  7. HYDROCO/APAP [Concomitant]
     Active Substance: ACETAMINOPHEN\HYDROCODONE
  8. NARCAN [Concomitant]
     Active Substance: NALOXONE HYDROCHLORIDE
  9. CYCLOPHOSPHAMIDE 50MG CAP [Suspect]
     Active Substance: CYCLOPHOSPHAMIDE
     Indication: OVARIAN CANCER
     Route: 058
     Dates: start: 20200509
  10. POLYETH GLYC [Concomitant]
     Active Substance: POLYETHYLENE GLYCOLS
  11. TINIDAZOLE. [Concomitant]
     Active Substance: TINIDAZOLE
  12. AMLODIPINE [Concomitant]
     Active Substance: AMLODIPINE BESYLATE
  13. ATORVASTATIN [Concomitant]
     Active Substance: ATORVASTATIN
  14. ACETAMINOPHE [Concomitant]
  15. ESCITALOPRAM [Concomitant]
     Active Substance: ESCITALOPRAM OXALATE
  16. METOCLOPRAM [Concomitant]
     Active Substance: METOCLOPRAMIDE
  17. OXYCODONE [Concomitant]
     Active Substance: OXYCODONE
  18. SUCRALFATE. [Concomitant]
     Active Substance: SUCRALFATE
  19. AMOX/K CLAV [Concomitant]
     Active Substance: AMOXICILLIN\CLAVULANATE POTASSIUM
  20. CEFUROXIME. [Concomitant]
     Active Substance: CEFUROXIME
  21. PANTOPRAZOLE [Concomitant]
     Active Substance: PANTOPRAZOLE
  22. VITAMIN D [Concomitant]
     Active Substance: VITAMIN D NOS

REACTIONS (2)
  - Therapy interrupted [None]
  - Hospitalisation [None]
